FAERS Safety Report 26054137 (Version 2)
Quarter: 2025Q4

REPORT INFORMATION
  Report Type: Report from Study
  Country: US (occurrence: US)
  Receive Date: 20251117
  Receipt Date: 20251215
  Transmission Date: 20260117
  Serious: Yes (Other)
  Sender: ALNYLAM PHARMACEUTICALS
  Company Number: US-ALNYLAM PHARMACEUTICALS, INC.-ALN-2025-002474

PATIENT
  Age: 88 Year

DRUGS (1)
  1. AMVUTTRA [Suspect]
     Active Substance: VUTRISIRAN
     Indication: Hereditary neuropathic amyloidosis
     Dosage: 25 MILLIGRAM, Q3M

REACTIONS (7)
  - Dementia [Unknown]
  - Spinal osteoarthritis [Unknown]
  - Surgery [Unknown]
  - Balance disorder [Unknown]
  - Mobility decreased [Unknown]
  - Activities of daily living decreased [Unknown]
  - Weight increased [Unknown]
